FAERS Safety Report 4621696-5 (Version None)
Quarter: 2005Q1

REPORT INFORMATION
  Report Type: 
  Country: None (occurrence: None)
  Receive Date: 20050329
  Receipt Date: 20050121
  Transmission Date: 20050727
  Serious: Yes (Hospitalization)
  Sender: FDA-Public Use
  Company Number: JP-BOEHRINGER INGELHEIM PHARMMACEUTICALS, INC.-2005-BP-01110NB

PATIENT
  Age: 9 Decade
  Sex: Male

DRUGS (7)
  1. SPIRIVA [Suspect]
     Indication: EMPHYSEMA
     Route: 055
     Dates: start: 20050121
  2. AVISHOT [Concomitant]
     Indication: HYPERTENSION
     Route: 048
  3. ALFAROL [Concomitant]
     Route: 048
  4. GASTER [Concomitant]
     Route: 048
  5. MEVALOTIN [Concomitant]
     Route: 048
  6. NU-LOTAN [Concomitant]
     Route: 048
  7. DEPAS [Concomitant]
     Route: 048

REACTIONS (5)
  - AORTIC VALVE CALCIFICATION [None]
  - ARRHYTHMIA [None]
  - MITRAL VALVE CALCIFICATION [None]
  - MITRAL VALVE INCOMPETENCE [None]
  - SUPRAVENTRICULAR EXTRASYSTOLES [None]
